FAERS Safety Report 5067636-9 (Version None)
Quarter: 2006Q3

REPORT INFORMATION
  Report Type: 
  Country: None (occurrence: None)
  Receive Date: 20060802
  Receipt Date: 20060724
  Transmission Date: 20061208
  Serious: Yes (Hospitalization, Other)
  Sender: FDA-Public Use
  Company Number: CH-RB-3626-2006

PATIENT
  Age: 93 Year
  Sex: Male
  Weight: 73 kg

DRUGS (11)
  1. BUPRENORPHINE HCL [Suspect]
     Route: 048
     Dates: start: 20060328, end: 20060328
  2. BUPRENORPHINE HCL [Suspect]
     Route: 048
     Dates: start: 20060329, end: 20060404
  3. TRAMADOL HCL [Suspect]
     Route: 048
     Dates: start: 20060311, end: 20060313
  4. TRAMADOL HCL [Suspect]
     Route: 048
     Dates: start: 20060314, end: 20060327
  5. OXCARBAZEPINE [Suspect]
     Route: 048
  6. ESCITALOPRAM [Suspect]
     Indication: DEPRESSION
     Route: 048
  7. TRIMIPRAMINE MALEATE [Concomitant]
     Route: 065
     Dates: end: 20060408
  8. IBUPROFEN [Concomitant]
     Route: 065
     Dates: end: 20060411
  9. ALFUZOSIN [Concomitant]
     Route: 048
     Dates: end: 20060411
  10. RISPERIDONE [Concomitant]
     Indication: DELIRIUM
     Route: 048
     Dates: start: 20060404, end: 20060411
  11. PREGABALIN [Concomitant]
     Route: 048
     Dates: end: 20060326

REACTIONS (6)
  - CONFUSIONAL STATE [None]
  - DISORIENTATION [None]
  - FATIGUE [None]
  - HALLUCINATION [None]
  - INSOMNIA [None]
  - SOMNOLENCE [None]
